FAERS Safety Report 8506332-X (Version None)
Quarter: 2012Q3

REPORT INFORMATION
  Report Type: 
  Country: None (occurrence: None)
  Receive Date: 20120706
  Receipt Date: 20120706
  Transmission Date: 20120928
  Serious: No
  Sender: FDA-Public Use
  Company Number: None

PATIENT
  Age: 40 Year
  Sex: Female
  Weight: 58.9676 kg

DRUGS (1)
  1. ZEMAIRA [Suspect]
     Indication: ALPHA-1 ANTI-TRYPSIN DEFICIENCY
     Dosage: 60 MG PER KG (+/- 10%) IV WEEKLY
     Route: 042
     Dates: start: 20120524, end: 20120620

REACTIONS (3)
  - INFUSION RELATED REACTION [None]
  - PRODUCT COLOUR ISSUE [None]
  - DISCOMFORT [None]
